FAERS Safety Report 11588565 (Version 1)
Quarter: 2015Q4

REPORT INFORMATION
  Report Type: Report from Study
  Country: US (occurrence: US)
  Receive Date: 20151002
  Receipt Date: 20151002
  Transmission Date: 20160304
  Serious: Yes (Death)
  Sender: FDA-Public Use
  Company Number: US-ROCHE-1564551

PATIENT
  Age: 2 Year
  Sex: Female
  Weight: 12 kg

DRUGS (14)
  1. FLUOCINOLONE [Concomitant]
     Active Substance: FLUOCINOLONE
     Route: 061
     Dates: start: 20131009
  2. GENTAMICIN. [Concomitant]
     Active Substance: GENTAMICIN
     Dosage: 0.1 % CREAM
     Route: 061
     Dates: start: 20141231
  3. ERYPED [Concomitant]
     Active Substance: ERYTHROMYCIN ETHYLSUCCINATE
     Dosage: 200; 123 MG= 3 ML
     Route: 048
     Dates: start: 20150304
  4. SODIUM POLYSTYRENE SULFONATE. [Concomitant]
     Active Substance: SODIUM POLYSTYRENE SULFONATE
     Dosage: ORAL AND RECTAL POWDER.?ADD 2.5 SPOON TO 24 HR FORMULA
     Route: 065
     Dates: start: 20150225
  5. TYLENOL [Concomitant]
     Active Substance: ACETAMINOPHEN
     Route: 048
     Dates: start: 20150128
  6. NUTROPIN [Suspect]
     Active Substance: SOMATROPIN
     Indication: CHRONIC KIDNEY DISEASE
     Dosage: NIGHTLY
     Route: 058
  7. ENALAPRIL [Concomitant]
     Active Substance: ENALAPRIL
     Dosage: 1 MG/ML
     Route: 048
  8. KAYEXALATE [Concomitant]
     Active Substance: SODIUM POLYSTYRENE SULFONATE
     Dosage: 3 TSP ADDED TO 24 HOUR BATCH FORMULA
     Route: 065
  9. EPOGEN [Concomitant]
     Active Substance: ERYTHROPOIETIN
     Dosage: 1200 UNITS, 10000 UNITS/ML
     Route: 058
     Dates: start: 20150225
  10. SENSIPAR [Concomitant]
     Active Substance: CINACALCET HYDROCHLORIDE
     Route: 048
     Dates: start: 20141222
  11. HYDROXYZINE HYDROCHLORIDE. [Concomitant]
     Active Substance: HYDROXYZINE HYDROCHLORIDE
     Dosage: 10MG/5 ML
     Route: 048
  12. ISRADIPINE. [Concomitant]
     Active Substance: ISRADIPINE
     Dosage: 1 MG/1ML, EVERY 6 HOURS FOR BP 115/80, 50 ML.
     Route: 048
     Dates: start: 20141212
  13. PREVACID [Concomitant]
     Active Substance: LANSOPRAZOLE
     Dosage: 9 MG/3ML SUSPENSION
     Route: 048
     Dates: start: 20150202
  14. CALCITRIOL. [Concomitant]
     Active Substance: CALCITRIOL
     Dosage: 1 MCG/ML
     Route: 048
     Dates: start: 20150115

REACTIONS (4)
  - Death [Fatal]
  - Blood calcium decreased [Unknown]
  - High density lipoprotein decreased [Unknown]
  - Low density lipoprotein increased [Unknown]

NARRATIVE: CASE EVENT DATE: 20150311
